FAERS Safety Report 7398165-5 (Version None)
Quarter: 2011Q2

REPORT INFORMATION
  Report Type: 
  Country: None (occurrence: None)
  Receive Date: 20110406
  Receipt Date: 20110324
  Transmission Date: 20111010
  Serious: Yes (Other)
  Sender: FDA-Public Use
  Company Number: PHEH2009US02577

PATIENT
  Sex: Male

DRUGS (7)
  1. LISINOPRIL [Concomitant]
     Dosage: 40 MG, UNK
  2. FLOMAX [Concomitant]
  3. AMBIEN [Concomitant]
  4. NIFEDIPINE [Concomitant]
     Dosage: 90 MG, UNK
  5. AREDIA [Suspect]
     Indication: METASTASES TO BONE
     Dosage: 90 MG, QMO
     Dates: start: 20050401, end: 20061102
  6. CASODEX [Concomitant]
  7. DETROL [Concomitant]

REACTIONS (40)
  - NEOPLASM MALIGNANT [None]
  - METASTASES TO BONE [None]
  - PROSTATE CANCER METASTATIC [None]
  - BONE DISORDER [None]
  - CEREBRAL ISCHAEMIA [None]
  - NEPHROLITHIASIS [None]
  - HYPERLIPIDAEMIA [None]
  - PRESBYOPIA [None]
  - DIVERTICULUM INTESTINAL [None]
  - OSTEOPENIA [None]
  - BLADDER TRABECULATION [None]
  - OSTEOARTHRITIS [None]
  - METASTASES TO SPINE [None]
  - ANHEDONIA [None]
  - DEPRESSION [None]
  - FALL [None]
  - CEREBRAL ATROPHY [None]
  - OBSTRUCTIVE UROPATHY [None]
  - THYROID CYST [None]
  - ACTINOMYCOSIS [None]
  - PARAESTHESIA [None]
  - OSTEOMYELITIS [None]
  - DISABILITY [None]
  - SWELLING [None]
  - CARDIOMEGALY [None]
  - OSTEONECROSIS OF JAW [None]
  - INJURY [None]
  - RENAL CYST [None]
  - CHRONIC OBSTRUCTIVE PULMONARY DISEASE [None]
  - FEMORAL NECK FRACTURE [None]
  - HYDRONEPHROSIS [None]
  - BLADDER DIVERTICULUM [None]
  - PROSTATOMEGALY [None]
  - PAIN [None]
  - ANXIETY [None]
  - RIB FRACTURE [None]
  - SPINAL OSTEOARTHRITIS [None]
  - URACHAL ABNORMALITY [None]
  - LYMPHADENOPATHY [None]
  - HIP FRACTURE [None]
